FAERS Safety Report 16388461 (Version 3)
Quarter: 2019Q3

REPORT INFORMATION
  Report Type: Spontaneous
  Country: US (occurrence: US)
  Receive Date: 20190604
  Receipt Date: 20190812
  Transmission Date: 20191004
  Serious: No
  Sender: FDA-Public Use
  Company Number: US-PFIZER INC-2019237674

PATIENT
  Age: 63 Year
  Sex: Female
  Weight: 70 kg

DRUGS (1)
  1. XELJANZ [Suspect]
     Active Substance: TOFACITINIB CITRATE
     Indication: RHEUMATOID ARTHRITIS
     Dosage: 5 MG, DAILY FOR 2WEEKS-IF TOLERATED INCRE)
     Route: 048
     Dates: start: 20190206

REACTIONS (4)
  - Off label use [Unknown]
  - Contusion [Unknown]
  - Headache [Unknown]
  - Erythema [Unknown]
